FAERS Safety Report 9676266 (Version 3)
Quarter: 2014Q1

REPORT INFORMATION
  Report Type: Report from Study
  Country: JP (occurrence: JP)
  Receive Date: 20131107
  Receipt Date: 20140212
  Transmission Date: 20141002
  Serious: Yes (Hospitalization)
  Sender: FDA-Public Use
  Company Number: JP-ROCHE-1300304

PATIENT
  Age: 44 Year
  Sex: Female

DRUGS (11)
  1. OMALIZUMAB [Suspect]
     Indication: ASTHMA
     Route: 058
     Dates: start: 20130115, end: 20130610
  2. OMALIZUMAB [Suspect]
     Route: 065
     Dates: start: 201309
  3. SYMBICORT [Suspect]
     Indication: ASTHMA
     Route: 050
     Dates: start: 20120611
  4. PREDNISOLONE [Suspect]
     Indication: ASTHMA
     Route: 048
     Dates: start: 20120611
  5. PREDNISOLONE [Suspect]
     Route: 048
     Dates: start: 20130611, end: 20130620
  6. PREDNISOLONE [Suspect]
     Route: 065
     Dates: start: 20130712
  7. SINGULAIR [Concomitant]
  8. IPD [Concomitant]
  9. XYZAL [Concomitant]
  10. BETAMETHASONE [Concomitant]
  11. METHYLPREDNISOLONE [Concomitant]

REACTIONS (6)
  - Allergic granulomatous angiitis [Not Recovered/Not Resolved]
  - Eye disorder [Unknown]
  - Eosinophilic pneumonia [Recovering/Resolving]
  - Atelectasis [Recovering/Resolving]
  - Asthma [Recovering/Resolving]
  - Nasopharyngitis [Recovered/Resolved]
